FAERS Safety Report 19745270 (Version 1)
Quarter: 2021Q3

REPORT INFORMATION
  Report Type: Spontaneous
  Country: US (occurrence: US)
  Receive Date: 20210824
  Receipt Date: 20210824
  Transmission Date: 20211014
  Serious: Yes (Other)
  Sender: FDA-Public Use
  Company Number: None

PATIENT
  Age: 31 Year
  Sex: Female

DRUGS (4)
  1. JUNEL FE 1/20 [Concomitant]
     Active Substance: ETHINYL ESTRADIOL\NORETHINDRONE ACETATE
  2. DULOXETINE 30 MG CAPSULE, DELAYED RELEASE GENERIC FOR CYMBALTA [Suspect]
     Active Substance: DULOXETINE
     Indication: DEPRESSION
     Dosage: ?          QUANTITY:21 CAPSULE(S);?
     Route: 048
     Dates: start: 20210819
  3. VITAFUSION MULTIVITES [Concomitant]
  4. 260 GUMMIES [Concomitant]

REACTIONS (3)
  - Chills [None]
  - Feeling of body temperature change [None]
  - Hyperhidrosis [None]

NARRATIVE: CASE EVENT DATE: 20210824
